FAERS Safety Report 5477721-5 (Version None)
Quarter: 2007Q4

REPORT INFORMATION
  Report Type: 
  Country: None (occurrence: None)
  Receive Date: 20071002
  Receipt Date: 20070913
  Transmission Date: 20080405
  Serious: Yes (Death)
  Sender: FDA-Public Use
  Company Number: 8026513

PATIENT
  Age: 50 Year
  Sex: Female

DRUGS (3)
  1. KEPPRA [Suspect]
     Dosage: 500 MG 2/D IV
     Route: 042
  2. KEPPRA [Suspect]
     Dosage: 2500 MG 2/D IV
     Route: 042
  3. KEPPRA [Suspect]
     Dosage: 500 MG 2/D IV
     Route: 042

REACTIONS (1)
  - INCORRECT DOSE ADMINISTERED [None]
